FAERS Safety Report 4445592-1 (Version None)
Quarter: 2004Q3

REPORT INFORMATION
  Report Type: 
  Country: None (occurrence: None)
  Receive Date: 20040902
  Receipt Date: 20040823
  Transmission Date: 20050211
  Serious: Yes (Hospitalization)
  Sender: FDA-Public Use
  Company Number: 2004-119329-NL

PATIENT
  Age: 56 Year
  Sex: Female

DRUGS (8)
  1. VECURONIUM BROMIDE [Suspect]
     Indication: INTUBATION
     Dosage: 5 MG ONCE INTRAVENOUS (NOS)
     Route: 042
     Dates: start: 20040805, end: 20040805
  2. THIAMYLAL SODIUM [Concomitant]
  3. HYDROXYZINE HYDROCHLORIDE [Concomitant]
  4. ATROPINE SULFATE [Concomitant]
  5. MEPIVACAINE HCL [Concomitant]
  6. SEVOFLURANE [Concomitant]
  7. CEFOTIAM HYDROCHLORIDE [Concomitant]
  8. EPHEDRINE SUL CAP [Concomitant]

REACTIONS (5)
  - ABASIA [None]
  - ANAESTHETIC COMPLICATION NEUROLOGICAL [None]
  - ASTHENIA [None]
  - LOSS OF CONSCIOUSNESS [None]
  - MYASTHENIC SYNDROME [None]
